FAERS Safety Report 7599368-7 (Version None)
Quarter: 2011Q3

REPORT INFORMATION
  Report Type: 
  Country: None (occurrence: None)
  Receive Date: 20110711
  Receipt Date: 20110411
  Transmission Date: 20111222
  Serious: Yes (Hospitalization, Other)
  Sender: FDA-Public Use
  Company Number: US-BAYER-2011-032582

PATIENT
  Age: 62 Year
  Sex: Male
  Weight: 73 kg

DRUGS (17)
  1. ANTINEOPLASTIC AGENTS [Suspect]
     Indication: PROSTATE CANCER METASTATIC
     Dosage: 250 ML, UNK
     Route: 042
     Dates: start: 20101210, end: 20101210
  2. LUPRON [Suspect]
     Indication: PRODUCT USED FOR UNKNOWN INDICATION
     Route: 058
  3. ANALGESICS [Suspect]
     Indication: PRODUCT USED FOR UNKNOWN INDICATION
  4. NEURONTIN [Concomitant]
  5. ACTIGALL [Concomitant]
  6. HYDROMORPHONE HCL [Concomitant]
  7. PRILOSEC [Concomitant]
  8. KETOCONAZOLE [Concomitant]
  9. DOSTINEX [Concomitant]
  10. VIVELLE-DOT [Concomitant]
  11. SUPER BIO-CURCUMIN [Concomitant]
  12. VITAMIN D [Concomitant]
  13. RESEVERTL-POMGRN-GRN T-GRP-ACI [Concomitant]
  14. LEUKINE [Suspect]
     Indication: PRODUCT USED FOR UNKNOWN INDICATION
     Dosage: 250 ?G, UNK
  15. HERBAL PREPARATION [Concomitant]
  16. AVODART [Concomitant]
  17. COUMADIN [Concomitant]

REACTIONS (14)
  - VOMITING [None]
  - PRESYNCOPE [None]
  - COELIAC ARTERY STENOSIS [None]
  - ADVERSE DRUG REACTION [None]
  - BONE PAIN [None]
  - BLOOD CREATINE PHOSPHOKINASE ABNORMAL [None]
  - CHOLELITHIASIS [None]
  - FATIGUE [None]
  - THROMBOCYTOPENIA [None]
  - DIZZINESS [None]
  - NORMOCHROMIC NORMOCYTIC ANAEMIA [None]
  - PROSTATIC SPECIFIC ANTIGEN INCREASED [None]
  - METASTASES TO BONE [None]
  - ASPARTATE AMINOTRANSFERASE INCREASED [None]
